FAERS Safety Report 14555125 (Version 2)
Quarter: 2018Q1

REPORT INFORMATION
  Report Type: Spontaneous
  Country: US (occurrence: US)
  Receive Date: 20180220
  Receipt Date: 20180301
  Transmission Date: 20180509
  Serious: Yes (Hospitalization, Other)
  Sender: FDA-Public Use
  Company Number: US-VALIDUS PHARMACEUTICALS LLC-US-2018VAL000356

PATIENT
  Age: 60 Year
  Sex: Male

DRUGS (2)
  1. CEFEPIME [Suspect]
     Active Substance: CEFEPIME HYDROCHLORIDE
     Indication: PRODUCT USED FOR UNKNOWN INDICATION
     Dosage: UNK
     Route: 065
  2. FUROSEMIDE. [Suspect]
     Active Substance: FUROSEMIDE
     Indication: PRODUCT USED FOR UNKNOWN INDICATION
     Dosage: UNK
     Route: 065

REACTIONS (11)
  - Skin exfoliation [Recovered/Resolved]
  - Dermatitis exfoliative generalised [Recovered/Resolved]
  - Acute generalised exanthematous pustulosis [Recovered/Resolved]
  - Oedema [Recovered/Resolved]
  - Rash pustular [Recovered/Resolved]
  - Rash [Recovered/Resolved]
  - Leukocytosis [Recovered/Resolved]
  - Rash erythematous [Recovered/Resolved]
  - Generalised oedema [Recovered/Resolved]
  - Acute kidney injury [Unknown]
  - Hepatic function abnormal [Unknown]
